FAERS Safety Report 6856051-0 (Version None)
Quarter: 2010Q3

REPORT INFORMATION
  Report Type: 
  Country: None (occurrence: None)
  Receive Date: 20100715
  Receipt Date: 20100715
  Transmission Date: 20110219
  Serious: Yes (Other)
  Sender: FDA-Public Use
  Company Number: None

PATIENT
  Age: 63 Year
  Sex: Male
  Weight: 97.5234 kg

DRUGS (1)
  1. LEVITRA [Suspect]
     Indication: ERECTILE DYSFUNCTION
     Dosage: 20MG ONCE DAILY AS NEEDED PO
     Route: 048
     Dates: start: 20100319, end: 20100319

REACTIONS (2)
  - DYSPNOEA [None]
  - MUSCLE SPASMS [None]
